FAERS Safety Report 5392142-1 (Version None)
Quarter: 2007Q3

REPORT INFORMATION
  Report Type: 
  Country: None (occurrence: None)
  Receive Date: 20070718
  Receipt Date: 20070718
  Transmission Date: 20080115
  Serious: Yes (Hospitalization)
  Sender: FDA-Public Use
  Company Number: None

PATIENT
  Age: 86 Year
  Sex: Male

DRUGS (1)
  1. DOXAZOSIN MESYLATE [Suspect]
     Dosage: 1MG EVERY DAY PO
     Route: 048
     Dates: start: 20070411, end: 20070413

REACTIONS (4)
  - FALL [None]
  - HIP FRACTURE [None]
  - HYPOTENSION [None]
  - SYNCOPE [None]
